FAERS Safety Report 4284794-4 (Version None)
Quarter: 2004Q1

REPORT INFORMATION
  Report Type: 
  Country: None (occurrence: None)
  Receive Date: 20040202
  Receipt Date: 20040120
  Transmission Date: 20041129
  Serious: No
  Sender: FDA-Public Use
  Company Number: 04P-167-0248128-00

PATIENT
  Sex: Male

DRUGS (6)
  1. DEPAKOTE [Suspect]
     Dates: start: 20040113
  2. DIHYDROCODEINE + PARACETAMOL [Concomitant]
  3. SERTRALINE HCL [Concomitant]
  4. QUININE [Concomitant]
  5. ATENOLOL [Concomitant]
  6. PIZOTIFEN [Concomitant]

REACTIONS (3)
  - CONDITION AGGRAVATED [None]
  - LOSS OF CONSCIOUSNESS [None]
  - MUSCLE CRAMP [None]
